FAERS Safety Report 5366512-1 (Version None)
Quarter: 2007Q2

REPORT INFORMATION
  Report Type: 
  Country: None (occurrence: None)
  Receive Date: 20070622
  Receipt Date: 20070612
  Transmission Date: 20071010
  Serious: Yes (Hospitalization)
  Sender: FDA-Public Use
  Company Number: FR-AMGEN-US230470

PATIENT
  Age: 55 Year
  Sex: Female
  Weight: 52 kg

DRUGS (7)
  1. ENBREL [Suspect]
     Indication: POLYARTHRITIS
     Route: 058
     Dates: start: 20030605, end: 20070207
  2. INIPOMP [Suspect]
     Indication: PEPTIC ULCER
     Route: 048
     Dates: start: 20070205, end: 20070207
  3. EFFEXOR [Suspect]
     Indication: DEPRESSION
     Route: 048
     Dates: start: 20061115, end: 20070202
  4. EFFEXOR [Suspect]
     Route: 048
     Dates: start: 20070205, end: 20070207
  5. CYTOTEC [Suspect]
     Indication: PEPTIC ULCER
     Route: 048
     Dates: start: 20070206, end: 20070207
  6. SKENAN [Concomitant]
     Indication: ARTHRALGIA
     Dosage: 10 MG; ON REQUEST
     Route: 048
     Dates: end: 20070211
  7. ARTHROTEC [Concomitant]
     Indication: ARTHRALGIA
     Route: 048
     Dates: start: 20060615, end: 20070206

REACTIONS (3)
  - MENINGISM [None]
  - NEUTROPENIA [None]
  - PYREXIA [None]
